FAERS Safety Report 23429612 (Version 4)
Quarter: 2024Q1

REPORT INFORMATION
  Report Type: Spontaneous
  Country: FR (occurrence: FR)
  Receive Date: 20240122
  Receipt Date: 20240328
  Transmission Date: 20240410
  Serious: Yes (Life-Threatening, Hospitalization)
  Sender: FDA-Public Use
  Company Number: None

PATIENT
  Age: 69 Year
  Sex: Female

DRUGS (8)
  1. VORICONAZOLE [Interacting]
     Active Substance: VORICONAZOLE
     Indication: Aspergillus infection
     Dosage: 8 MG/KG, 1X/DAY
     Route: 048
     Dates: start: 20231215, end: 20231218
  2. VORICONAZOLE [Interacting]
     Active Substance: VORICONAZOLE
     Indication: Aspergillus infection
     Dosage: 10 MG/KG, 1X/DAY
     Route: 042
     Dates: start: 20231207, end: 20231207
  3. VORICONAZOLE [Interacting]
     Active Substance: VORICONAZOLE
     Dosage: 8 MG/KG, 1X/DAY
     Route: 042
     Dates: start: 20231208, end: 20231214
  4. AMIODARONE [Interacting]
     Active Substance: AMIODARONE
     Indication: Atrial fibrillation
     Dosage: 800 MG, SINGLE
     Route: 048
     Dates: start: 20231214, end: 20231214
  5. AMIODARONE [Interacting]
     Active Substance: AMIODARONE
     Dosage: 150 MG, SINGLE
     Route: 042
     Dates: start: 20231218, end: 20231218
  6. PIPERACILLIN SODIUM\TAZOBACTAM SODIUM [Concomitant]
     Active Substance: PIPERACILLIN SODIUM\TAZOBACTAM SODIUM
     Dosage: 16 G, 1X/DAY
     Route: 042
     Dates: start: 20231204, end: 20231214
  7. VALACYCLOVIR HYDROCHLORIDE [Concomitant]
     Active Substance: VALACYCLOVIR HYDROCHLORIDE
     Dosage: 1 G, 1X/DAY
     Route: 048
  8. DAPTOMYCIN [Concomitant]
     Active Substance: DAPTOMYCIN
     Dosage: FREQ:24 H;
     Route: 042
     Dates: start: 20231215, end: 20231219

REACTIONS (5)
  - Drug interaction [Recovered/Resolved]
  - Overdose [Recovered/Resolved]
  - Neurological decompensation [Recovered/Resolved]
  - Hepatic cytolysis [Recovered/Resolved]
  - Off label use [Unknown]

NARRATIVE: CASE EVENT DATE: 20231207
